FAERS Safety Report 16445220 (Version 6)
Quarter: 2020Q2

REPORT INFORMATION
  Report Type: Spontaneous
  Country: CN (occurrence: CN)
  Receive Date: 20190618
  Receipt Date: 20200430
  Transmission Date: 20200713
  Serious: Yes (Death, Life-Threatening, Hospitalization)
  Sender: FDA-Public Use
  Company Number: CN-CELGENEUS-CHN-20190605532

PATIENT
  Age: 74 Year
  Sex: Male
  Weight: 53 kg

DRUGS (23)
  1. CASPOFUNGIN [Concomitant]
     Active Substance: CASPOFUNGIN
     Indication: PNEUMONIA
  2. VORICONAZOLE. [Concomitant]
     Active Substance: VORICONAZOLE
     Indication: PNEUMONIA
     Dosage: 400 MILLIGRAM
     Route: 041
     Dates: start: 20190426
  3. HUMAN GRANULOCYTE MACROPHAGE STIMULATING FACTOR [Concomitant]
     Indication: LEUKOPENIA
     Dosage: 300 MICROGRAM
     Route: 058
     Dates: start: 20190527
  4. CETYLPYRIDINIUM CHLORIDE. [Concomitant]
     Active Substance: CETYLPYRIDINIUM CHLORIDE
     Indication: INFECTION PROPHYLAXIS
     Dosage: 30 MILLILITER
     Route: 048
     Dates: start: 20190323
  5. VENETOCLAX. [Concomitant]
     Active Substance: VENETOCLAX
     Dosage: 400 MILLIGRAM
     Route: 048
     Dates: start: 20190404, end: 20190425
  6. VENETOCLAX. [Concomitant]
     Active Substance: VENETOCLAX
     Dosage: 50 MILLIGRAM
     Route: 048
     Dates: start: 20190514, end: 20190609
  7. SULPERAZON [Concomitant]
     Active Substance: CEFOPERAZONE SODIUM\SULBACTAM SODIUM
     Dosage: 9 GRAM
     Route: 041
     Dates: start: 20190509
  8. TAMSULOSIN [Concomitant]
     Active Substance: TAMSULOSIN
     Indication: BENIGN PROSTATIC HYPERPLASIA
     Dosage: .2 MILLIGRAM
     Route: 048
     Dates: start: 20190325
  9. AZACITIDINE. [Suspect]
     Active Substance: AZACITIDINE
     Indication: ACUTE MYELOID LEUKAEMIA
     Dosage: 75 MILLIGRAM/SQ. METER
     Route: 058
     Dates: start: 20190402, end: 20190520
  10. HUMAN GRANULOCYTE STIMULATING FACTOR [Concomitant]
     Indication: NEUTROPENIA
     Dosage: 300 MICROGRAM
     Route: 058
     Dates: start: 20190526, end: 20190526
  11. SULPERAZON [Concomitant]
     Active Substance: CEFOPERAZONE SODIUM\SULBACTAM SODIUM
     Indication: PNEUMONIA
     Dosage: 9 GRAM
     Route: 041
     Dates: start: 20190326, end: 20190408
  12. MEGESTROL [Concomitant]
     Active Substance: MEGESTROL
     Indication: DECREASED APPETITE
     Dosage: .16 GRAM
     Route: 048
     Dates: start: 20190407, end: 20190608
  13. VENETOCLAX. [Concomitant]
     Active Substance: VENETOCLAX
     Dosage: 50 MILLIGRAM
     Route: 048
     Dates: start: 20190426, end: 20190502
  14. HUMAN THROMBOPOIETIN [Concomitant]
     Dosage: 15000 IU (INTERNATIONAL UNIT)
     Route: 058
     Dates: start: 20190524
  15. ACETYLCYSTEINE. [Concomitant]
     Active Substance: ACETYLCYSTEINE
     Indication: PNEUMONIA
     Dosage: 1200 MILLIGRAM
     Route: 048
     Dates: start: 20190429
  16. HUMAN GRANULOCYTE STIMULATING FACTOR [Concomitant]
     Indication: LEUKOPENIA
     Dosage: 300 MICROGRAM
     Route: 041
     Dates: start: 20190528
  17. VENETOCLAX. [Concomitant]
     Active Substance: VENETOCLAX
     Indication: ACUTE MYELOID LEUKAEMIA
     Dosage: 100 MILLIGRAM
     Route: 048
     Dates: start: 20190402, end: 20190402
  18. VENETOCLAX. [Concomitant]
     Active Substance: VENETOCLAX
     Dosage: 200 MILLIGRAM
     Route: 048
     Dates: start: 20190403, end: 20190403
  19. CASPOFUNGIN [Concomitant]
     Active Substance: CASPOFUNGIN
     Indication: PNEUMONIA
     Dosage: 50 MILLIGRAM
     Route: 041
     Dates: start: 20190326
  20. SULPERAZON [Concomitant]
     Active Substance: CEFOPERAZONE SODIUM\SULBACTAM SODIUM
     Dosage: 9 GRAM
     Route: 041
     Dates: start: 20190426, end: 20190428
  21. HUMAN THROMBOPOIETIN [Concomitant]
     Indication: THROMBOCYTOPENIA
     Dosage: 15000 IU (INTERNATIONAL UNIT)
     Route: 058
     Dates: start: 20190407, end: 20190426
  22. HUMAN GRANULOCYTE MACROPHAGE STIMULATING FACTOR [Concomitant]
     Indication: NEUTROPENIA
     Dosage: 600 MICROGRAM
     Route: 058
     Dates: start: 20190408, end: 20190427
  23. SODIUM BICARBONATE. [Concomitant]
     Active Substance: SODIUM BICARBONATE
     Indication: INFECTION PROPHYLAXIS
     Dosage: 30 MILLILITER
     Route: 048
     Dates: start: 20190323

REACTIONS (2)
  - Coma [Fatal]
  - Seizure [Fatal]

NARRATIVE: CASE EVENT DATE: 20190609
